FAERS Safety Report 8521119-X (Version None)
Quarter: 2012Q3

REPORT INFORMATION
  Report Type: 
  Country: None (occurrence: None)
  Receive Date: 20120719
  Receipt Date: 20120711
  Transmission Date: 20120928
  Serious: Yes (Other)
  Sender: FDA-Public Use
  Company Number: GB-ROCHE-1081014

PATIENT
  Sex: Female
  Weight: 63 kg

DRUGS (1)
  1. HERCEPTIN [Suspect]
     Indication: BREAST CANCER
     Dosage: IN 250 ML SALINE AS AN INFUSION GIVEN OVER 90 MINUTES
     Route: 042
     Dates: start: 20111230

REACTIONS (2)
  - MUSCULOSKELETAL STIFFNESS [None]
  - MOVEMENT DISORDER [None]
